FAERS Safety Report 8062147-0 (Version None)
Quarter: 2012Q1

REPORT INFORMATION
  Report Type: 
  Country: None (occurrence: None)
  Receive Date: 20120118
  Receipt Date: 20120109
  Transmission Date: 20120608
  Serious: Yes (Death)
  Sender: FDA-Public Use
  Company Number: JPI-P-012961

PATIENT
  Age: 41 Year
  Sex: Female

DRUGS (11)
  1. ESCITALOPRAM [Concomitant]
  2. LANSOPRAZOLE [Concomitant]
  3. VITAMIN D [Concomitant]
  4. XYREM [Suspect]
     Indication: NARCOLEPSY
     Dosage: 4.5 GM (2.25 GM, 2 IN 1 D), ORAL (UNKNOWN, TITRATING DOSE), ORAL 9 GM (4.5 GM, 2 IN 1 D), ORAL
     Route: 048
     Dates: start: 20090201, end: 20090101
  5. XYREM [Suspect]
     Indication: NARCOLEPSY
     Dosage: 4.5 GM (2.25 GM, 2 IN 1 D), ORAL (UNKNOWN, TITRATING DOSE), ORAL 9 GM (4.5 GM, 2 IN 1 D), ORAL
     Route: 048
     Dates: start: 20090101, end: 20090101
  6. XYREM [Suspect]
     Indication: NARCOLEPSY
     Dosage: 4.5 GM (2.25 GM, 2 IN 1 D), ORAL (UNKNOWN, TITRATING DOSE), ORAL 9 GM (4.5 GM, 2 IN 1 D), ORAL
     Route: 048
     Dates: start: 20090101
  7. IBUPROFEN [Concomitant]
  8. MULTI-VITAMIN [Concomitant]
  9. MODAFINIL [Concomitant]
  10. PANTOPRAZOLE [Concomitant]
  11. FLUTICASONE PROPIONATE [Concomitant]

REACTIONS (5)
  - PULMONARY EMBOLISM [None]
  - ATRIOVENTRICULAR BLOCK [None]
  - TACHYCARDIA [None]
  - MADAROSIS [None]
  - URINE ODOUR ABNORMAL [None]
